FAERS Safety Report 15409795 (Version 3)
Quarter: 2018Q4

REPORT INFORMATION
  Report Type: Spontaneous
  Country: US (occurrence: US)
  Receive Date: 20180920
  Receipt Date: 20181008
  Transmission Date: 20190204
  Serious: Yes (Death, Hospitalization, Other)
  Sender: FDA-Public Use
  Company Number: US-009507513-1809USA008233

PATIENT
  Sex: Female
  Weight: 52.15 kg

DRUGS (13)
  1. SPIRIVA [Concomitant]
     Active Substance: TIOTROPIUM BROMIDE MONOHYDRATE
     Indication: CHRONIC OBSTRUCTIVE PULMONARY DISEASE
  2. CYANOCOBALAMIN. [Concomitant]
     Active Substance: CYANOCOBALAMIN
  3. VENTOLIN [Concomitant]
     Active Substance: ALBUTEROL SULFATE
     Indication: CHRONIC OBSTRUCTIVE PULMONARY DISEASE
  4. SEVERIN [Concomitant]
     Dosage: 2 DF, Q3W
     Dates: start: 20180315, end: 20180525
  5. KEYTRUDA [Suspect]
     Active Substance: PEMBROLIZUMAB
     Indication: NON-SMALL CELL LUNG CANCER
     Dosage: 240 MG, EVERY 3 WEEKS
     Route: 042
     Dates: start: 20180315, end: 20180524
  6. ALIMTA [Suspect]
     Active Substance: PEMETREXED DISODIUM
     Dosage: 8 CYCLES OF THERAPY
     Route: 048
     Dates: start: 20180313
  7. LORAZEPAM. [Concomitant]
     Active Substance: LORAZEPAM
  8. FOLATE [Concomitant]
     Active Substance: FOLATE SODIUM
  9. NEULASTA [Concomitant]
     Active Substance: PEGFILGRASTIM
  10. COMPAZINE [Concomitant]
     Active Substance: PROCHLORPERAZINE MALEATE
  11. CARBOPLATIN. [Suspect]
     Active Substance: CARBOPLATIN
     Dosage: UNK
  12. MORPHINE [Concomitant]
     Active Substance: MORPHINE
  13. PAROXETINE. [Concomitant]
     Active Substance: PAROXETINE

REACTIONS (2)
  - Therapy non-responder [Unknown]
  - Malignant neoplasm progression [Fatal]

NARRATIVE: CASE EVENT DATE: 2018
